FAERS Safety Report 11908806 (Version 1)
Quarter: 2016Q1

REPORT INFORMATION
  Report Type: Spontaneous
  Country: US (occurrence: US)
  Receive Date: 20160111
  Receipt Date: 20160111
  Transmission Date: 20160526
  Serious: No
  Sender: FDA-Public Use
  Company Number: US-GALDERMA-US15007644

PATIENT
  Age: 60 Year
  Sex: Female

DRUGS (3)
  1. CLEAR AND FREE LIGHT LOTION WITH NO PRESERVATIVES [Concomitant]
     Indication: DRY SKIN PROPHYLAXIS
     Route: 061
  2. CLEAR AND FREE CLEANSER [Concomitant]
     Indication: THERAPEUTIC SKIN CARE TOPICAL
     Route: 061
  3. SOOLANTRA [Suspect]
     Active Substance: IVERMECTIN
     Indication: ROSACEA
     Dosage: 1%
     Route: 061
     Dates: start: 20150921

REACTIONS (2)
  - Eye irritation [Not Recovered/Not Resolved]
  - Skin irritation [Not Recovered/Not Resolved]

NARRATIVE: CASE EVENT DATE: 20150923
